FAERS Safety Report 10274569 (Version 2)
Quarter: 2014Q3

REPORT INFORMATION
  Report Type: Spontaneous
  Country: FR (occurrence: FR)
  Receive Date: 20140702
  Receipt Date: 20140708
  Transmission Date: 20150326
  Serious: Yes (Death, Hospitalization, Other)
  Sender: FDA-Public Use
  Company Number: FR-PFIZER INC-2014178818

PATIENT
  Age: 89 Year
  Sex: Female

DRUGS (7)
  1. MICARDIS PLUS [Concomitant]
     Active Substance: HYDROCHLOROTHIAZIDE\TELMISARTAN
     Indication: HYPERTENSION
     Dosage: [TELMESARTAN 40 MG/ HYDROCHLOROTHIAZIDE 12.5 MG], 1X/DAY
     Route: 048
  2. XANAX [Concomitant]
     Active Substance: ALPRAZOLAM
     Dosage: 0.125 MG, 1X/DAY
     Route: 048
     Dates: start: 20140218, end: 20140309
  3. TAHOR [Suspect]
     Active Substance: ATORVASTATIN CALCIUM
     Dosage: 20 MG, 1X/DAY
     Route: 048
  4. GINKGO EXTRACT\HEPTAMINOL\TROXERUTIN [Concomitant]
     Active Substance: GINKGO\HEPTAMINOL\TROXERUTIN
     Dosage: 1 DF, 2X/DAY
     Route: 048
  5. PREVISCAN [Suspect]
     Active Substance: FLUINDIONE
     Indication: ATRIAL FIBRILLATION
     Dosage: 5 MG, 1X/DAY
     Route: 048
     Dates: end: 20140309
  6. AMIODARONE BIOGARAN [Suspect]
     Active Substance: AMIODARONE HYDROCHLORIDE
     Indication: ATRIAL FIBRILLATION
     Dosage: 200 MG, 1X/DAY (5 DAYS OUT OF 7)
     Route: 048
  7. DOLIPRANE [Concomitant]
     Active Substance: ACETAMINOPHEN
     Dosage: 500 MG, AS NEEDED
     Route: 048

REACTIONS (10)
  - Rectal haemorrhage [Fatal]
  - Hemiplegia [Unknown]
  - International normalised ratio increased [Recovered/Resolved]
  - Anaemia [Fatal]
  - Atrial fibrillation [Unknown]
  - Epistaxis [Fatal]
  - Muscle haemorrhage [Fatal]
  - Loss of consciousness [Unknown]
  - Escherichia infection [Unknown]
  - Overdose [Unknown]

NARRATIVE: CASE EVENT DATE: 201403
